FAERS Safety Report 9251007 (Version 1)
Quarter: 2013Q1

REPORT INFORMATION
  Report Type: Spontaneous
  Country: US (occurrence: None)
  Receive Date: 20130305
  Receipt Date: 20130305
  Transmission Date: 20140127
  Serious: Yes (Hospitalization)
  Sender: FDA-Public Use
  Company Number: 163-21880-12100654

PATIENT
  Age: 87 Year
  Sex: Male

DRUGS (9)
  1. REVLIMID [Suspect]
     Indication: PLASMA CELL MYELOMA
     Dosage: 15MG, 1 IN 1 D, PO
     Route: 048
     Dates: start: 201009, end: 2010
  2. DEXAMETHASONE (DEXAMETHASONE) [Concomitant]
  3. OXYGEN (OXYGEN) [Concomitant]
  4. ALBUTEROL (SALBUTAMOL) [Concomitant]
  5. LASIX (FUROSEMIDE) [Concomitant]
  6. POTASSIUM CHLORIDE (POTASSIUM CHLORIDE) [Concomitant]
  7. ADVAIR (SERETIDE MITE) [Concomitant]
  8. SPIRIVA (TIOTROPIUM BROMIDE) [Concomitant]
  9. ROBITUSSIN (GUAIFESIN) [Concomitant]

REACTIONS (2)
  - Lung infection [None]
  - Nasopharyngitis [None]
